FAERS Safety Report 5873722-3 (Version None)
Quarter: 2008Q3

REPORT INFORMATION
  Report Type: 
  Country: None (occurrence: None)
  Receive Date: 20080904
  Receipt Date: 20080904
  Transmission Date: 20090109
  Serious: Yes (Hospitalization)
  Sender: FDA-Public Use
  Company Number: None

PATIENT
  Age: 77 Year
  Sex: Male

DRUGS (2)
  1. INSULIN [Suspect]
     Indication: DIABETES MELLITUS
     Dosage: 32 UNITS EVERY DAY PO
     Route: 048
     Dates: start: 20070928, end: 20080812
  2. GLIPIZIDE [Suspect]
     Indication: DIABETES MELLITUS
     Dosage: 10 MG BID PO
     Route: 048
     Dates: start: 20070911

REACTIONS (1)
  - HYPOGLYCAEMIA [None]
